FAERS Safety Report 6491511-6 (Version None)
Quarter: 2009Q4

REPORT INFORMATION
  Report Type: 
  Country: None (occurrence: None)
  Receive Date: 20091211
  Receipt Date: 20091209
  Transmission Date: 20100525
  Serious: Yes (Other)
  Sender: FDA-Public Use
  Company Number: JP-BAYER-200914749BYL

PATIENT
  Age: 49 Year
  Sex: Male

DRUGS (5)
  1. CIPROXAN-I.V. [Suspect]
     Indication: PSEUDOMONAS INFECTION
     Route: 065
  2. PHENYTOIN [Suspect]
     Indication: CONVULSION
     Route: 048
  3. VANCOMYCIN HCL [Concomitant]
     Indication: PSEUDOMONAS INFECTION
     Route: 065
  4. CEFTAZIDIME [Concomitant]
     Indication: PSEUDOMONAS INFECTION
     Route: 041
  5. PANIPENEM_BETAMIPRON [Concomitant]
     Indication: PSEUDOMONAS INFECTION
     Route: 041

REACTIONS (2)
  - CONVULSION [None]
  - DRUG INTERACTION [None]
